FAERS Safety Report 20329031 (Version 2)
Quarter: 2022Q1

REPORT INFORMATION
  Report Type: Report from Study
  Country: US (occurrence: US)
  Receive Date: 20220112
  Receipt Date: 20220207
  Transmission Date: 20220424
  Serious: Yes (Death, Hospitalization, Disabling)
  Sender: FDA-Public Use
  Company Number: US-PFIZER INC-202200010282

PATIENT
  Age: 17 Year
  Sex: Female
  Weight: 91 kg

DRUGS (11)
  1. DOXORUBICIN HYDROCHLORIDE [Suspect]
     Active Substance: DOXORUBICIN HYDROCHLORIDE
     Indication: B-cell type acute leukaemia
     Dosage: 50 MG, ONCE
     Route: 042
     Dates: start: 20211109, end: 20211122
  2. VINCRISTINE SULFATE [Suspect]
     Active Substance: VINCRISTINE SULFATE
     Indication: B-cell type acute leukaemia
     Dosage: 2 MG, ONCE
     Route: 042
     Dates: start: 20210702, end: 20211116
  3. CYTARABINE [Suspect]
     Active Substance: CYTARABINE
     Indication: B-cell type acute leukaemia
     Dosage: 149 MG, ONCE (MILLIGRAM/SQ. METER)
     Route: 042
     Dates: start: 20210618, end: 20211122
  4. METHOTREXATE SODIUM [Suspect]
     Active Substance: METHOTREXATE SODIUM
     Indication: B-cell type acute leukaemia
     Dosage: 15 MG, ONCE
     Route: 037
     Dates: start: 20210618, end: 20211109
  5. RUXOLITINIB [Suspect]
     Active Substance: RUXOLITINIB
     Indication: B-cell type acute leukaemia
     Dosage: 100 MG, QD
     Route: 048
     Dates: start: 20210618, end: 20211122
  6. CYCLOPHOSPHAMIDE [Suspect]
     Active Substance: CYCLOPHOSPHAMIDE
     Indication: B-cell type acute leukaemia
     Dosage: 1980 MG, ONCE
     Route: 042
     Dates: start: 20210618, end: 20211122
  7. MERCAPTOPURINE [Suspect]
     Active Substance: MERCAPTOPURINE
     Indication: B-cell type acute leukaemia
     Dosage: 50 MILLIGRAM (MON-SAT) 25 MILLIGRAM (SUN)
     Route: 048
     Dates: start: 20210618, end: 20211122
  8. PEGASPARGASE [Suspect]
     Active Substance: PEGASPARGASE
     Indication: B-cell type acute leukaemia
     Dosage: 3750 IU, ONCE (IU/M2)
     Route: 042
     Dates: start: 20210702, end: 20210702
  9. ASPARAGINASE ERWINIA CHRYSANTHEMI [Suspect]
     Active Substance: ASPARAGINASE ERWINIA CHRYSANTHEMI
     Indication: B-cell type acute leukaemia
     Dosage: 49500 IU, QDX6 DOSES
     Route: 042
     Dates: start: 20210709, end: 20210711
  10. ASPARAGINASE ERWINIA CHRYSANTHEMI [Suspect]
     Active Substance: ASPARAGINASE ERWINIA CHRYSANTHEMI
     Dosage: 50 MG, QDX6 DOSES
     Route: 030
     Dates: start: 20211112, end: 20211122
  11. RYLAZE [Suspect]
     Active Substance: ASPARAGINASE ERWINIA CHRYSANTHEMI (RECOMBINANT)-RYWN
     Indication: Acute lymphocytic leukaemia
     Dosage: 50 MG, QDX6 DOSES
     Route: 030
     Dates: start: 20211112, end: 20211122

REACTIONS (3)
  - Enterocolitis [Fatal]
  - Sepsis [Fatal]
  - Venoocclusive liver disease [Not Recovered/Not Resolved]

NARRATIVE: CASE EVENT DATE: 20211122
